FAERS Safety Report 8789501 (Version 1)
Quarter: 2012Q4

REPORT INFORMATION
  Report Type: Spontaneous
  Country: US (occurrence: None)
  Receive Date: 20120910
  Receipt Date: 20120910
  Transmission Date: 20130627
  Serious: Yes (Hospitalization)
  Sender: FDA-Public Use
  Company Number: None

PATIENT
  Age: 76 Year
  Sex: Male
  Weight: 69.85 kg

DRUGS (14)
  1. IFOSFAMIDE [Suspect]
     Indication: SARCOMA
     Route: 042
     Dates: start: 20120725
  2. DOXORUBICIN [Suspect]
     Route: 042
     Dates: start: 20120725
  3. PLAVIX [Concomitant]
  4. ASPIRIN [Concomitant]
  5. BACLOFEN [Concomitant]
  6. DEXAMETHASONE [Concomitant]
  7. HEPARIN SODIUM [Concomitant]
  8. LIDOCAINE [Concomitant]
  9. ATIVAN [Concomitant]
  10. MESNA [Concomitant]
  11. ZOFRAN [Concomitant]
  12. NEULASTA [Concomitant]
  13. PROCHLORPERAZINE [Concomitant]
  14. SIMVASTATIN [Concomitant]

REACTIONS (7)
  - Asthenia [None]
  - Febrile neutropenia [None]
  - Decreased appetite [None]
  - Anaemia [None]
  - Pneumonia [None]
  - Oesophageal candidiasis [None]
  - Oral candidiasis [None]
